FAERS Safety Report 4925110-1 (Version None)
Quarter: 2006Q1

REPORT INFORMATION
  Report Type: 
  Country: None (occurrence: None)
  Receive Date: 20060228
  Receipt Date: 20051017
  Transmission Date: 20060701
  Serious: No
  Sender: FDA-Public Use
  Company Number: US-GLAXOSMITHKLINE-A0578438A

PATIENT
  Age: 67 Year
  Sex: Male

DRUGS (4)
  1. AVODART [Suspect]
     Indication: BENIGN PROSTATIC HYPERPLASIA
     Dosage: .5MG PER DAY
     Route: 048
     Dates: start: 20050301, end: 20051014
  2. LISINOPRIL [Suspect]
     Indication: HYPERTENSION
     Dosage: 10MG TWICE PER DAY
     Route: 048
     Dates: start: 20050301
  3. LIPITOR [Concomitant]
     Dates: start: 20050301
  4. ASPIRIN [Concomitant]
     Route: 065
     Dates: start: 20040601

REACTIONS (2)
  - DYSGEUSIA [None]
  - SALIVARY HYPERSECRETION [None]
